FAERS Safety Report 5147761-4 (Version None)
Quarter: 2006Q4

REPORT INFORMATION
  Report Type: 
  Country: None (occurrence: None)
  Receive Date: 20061110
  Receipt Date: 20061103
  Transmission Date: 20070319
  Serious: Yes (Death, Hospitalization)
  Sender: FDA-Public Use
  Company Number: CH-BAYER-200615524GDS

PATIENT
  Age: 77 Year
  Sex: Male

DRUGS (14)
  1. CIPROFLOXACIN [Suspect]
     Indication: SEPSIS
     Dosage: TOTAL DAILY DOSE: 1000 MG  UNIT DOSE: 500 MG
     Route: 048
     Dates: start: 20060703, end: 20060707
  2. VANCOMYCIN [Suspect]
     Indication: SEPSIS
     Dosage: TOTAL DAILY DOSE: 2 G  UNIT DOSE: 1 G
     Route: 042
     Dates: start: 20060701, end: 20060706
  3. RIFAMPICIN [Suspect]
     Indication: SEPSIS
     Dosage: TOTAL DAILY DOSE: 600 MG  UNIT DOSE: 300 MG
     Route: 048
     Dates: start: 20060703, end: 20060707
  4. METHOTREXATE [Suspect]
     Indication: RHEUMATOID ARTHRITIS
     Route: 058
     Dates: end: 20060705
  5. MEROPENEM [Concomitant]
     Indication: DRUG USE FOR UNKNOWN INDICATION
     Dosage: TOTAL DAILY DOSE: 3 G  UNIT DOSE: 1 G
     Route: 042
     Dates: start: 20060623, end: 20060626
  6. FLUCONAZOLE [Concomitant]
     Indication: DRUG USE FOR UNKNOWN INDICATION
     Route: 048
     Dates: start: 20060703, end: 20060709
  7. CEFTRIAZONE [Concomitant]
     Indication: DRUG USE FOR UNKNOWN INDICATION
     Dosage: TOTAL DAILY DOSE: 4 G
     Route: 042
     Dates: start: 20060630, end: 20060703
  8. PIPERACILLIN AND TAZOBACTAM [Concomitant]
     Indication: DRUG USE FOR UNKNOWN INDICATION
     Dosage: TOTAL DAILY DOSE: 9 G
     Route: 042
     Dates: start: 20060711, end: 20060714
  9. FOLINIC ACID [Concomitant]
     Indication: DRUG USE FOR UNKNOWN INDICATION
     Route: 048
     Dates: start: 20060712, end: 20060714
  10. PHENPROCOUMON [Concomitant]
     Indication: DRUG USE FOR UNKNOWN INDICATION
     Route: 048
     Dates: end: 20060716
  11. PREDNISONE TAB [Concomitant]
     Indication: DRUG USE FOR UNKNOWN INDICATION
     Route: 048
     Dates: end: 20060716
  12. DICLOFENAC [Concomitant]
     Indication: RHEUMATOID ARTHRITIS
     Route: 048
     Dates: end: 20060716
  13. PANTOPRAZOL [Concomitant]
     Indication: DRUG USE FOR UNKNOWN INDICATION
     Route: 048
     Dates: end: 20060716
  14. AUGMENTIN '125' [Concomitant]
     Indication: SEPSIS
     Route: 065
     Dates: start: 20060604

REACTIONS (4)
  - MOUTH ULCERATION [None]
  - PANCYTOPENIA [None]
  - PYREXIA [None]
  - RENAL FAILURE ACUTE [None]
